FAERS Safety Report 5872400-4 (Version None)
Quarter: 2008Q3

REPORT INFORMATION
  Report Type: 
  Country: None (occurrence: None)
  Receive Date: 20080902
  Receipt Date: 20080820
  Transmission Date: 20090109
  Serious: Yes (Death, Life-Threatening)
  Sender: FDA-Public Use
  Company Number: 004091

PATIENT
  Age: 57 Year
  Sex: Female

DRUGS (6)
  1. BUSULFEX [Suspect]
     Indication: STEM CELL TRANSPLANT
     Dosage: 30 ML, INTRAVENOUS
     Route: 042
     Dates: start: 20070905, end: 20070906
  2. FLUDARABINE PHOSPHATE [Concomitant]
  3. VALPROATE SODIUM [Concomitant]
  4. LENOGRASTIM (LENOGRASTIM) [Concomitant]
  5. METHOTREXATE [Concomitant]
  6. CYCLOSPORINE [Concomitant]

REACTIONS (9)
  - ACUTE MYELOID LEUKAEMIA RECURRENT [None]
  - ANOREXIA [None]
  - BONE MARROW TRANSPLANT [None]
  - DIARRHOEA [None]
  - FEBRILE NEUTROPENIA [None]
  - MALAISE [None]
  - NAUSEA [None]
  - RETICULOCYTE COUNT DECREASED [None]
  - STOMATITIS [None]
